FAERS Safety Report 21097552 (Version 3)
Quarter: 2022Q3

REPORT INFORMATION
  Report Type: Spontaneous
  Country: IT (occurrence: IT)
  Receive Date: 20220719
  Receipt Date: 20220902
  Transmission Date: 20221026
  Serious: Yes (Death, Hospitalization, Other)
  Sender: FDA-Public Use
  Company Number: IT-NOVARTISPH-NVSC2021IT277582

PATIENT
  Age: 21 Month
  Sex: Male

DRUGS (1)
  1. ZOLGENSMA [Suspect]
     Active Substance: ONASEMNOGENE ABEPARVOVEC-XIOI
     Indication: Spinal muscular atrophy
     Dosage: UNK, ONCE/SINGLE
     Route: 042
     Dates: start: 20210507

REACTIONS (6)
  - Death [Fatal]
  - Encephalitis [Unknown]
  - Altered state of consciousness [Not Recovered/Not Resolved]
  - Pyrexia [Unknown]
  - Hypertransaminasaemia [Unknown]
  - Respiratory disorder [Unknown]

NARRATIVE: CASE EVENT DATE: 20210512
